FAERS Safety Report 4622395-6 (Version None)
Quarter: 2005Q1

REPORT INFORMATION
  Report Type: 
  Country: None (occurrence: None)
  Receive Date: 20050325
  Receipt Date: 20050325
  Transmission Date: 20050727
  Serious: Yes (Other)
  Sender: FDA-Public Use
  Company Number: None

PATIENT
  Age: 60 Year
  Sex: Female
  Weight: 68.0396 kg

DRUGS (2)
  1. ZOLOFT [Suspect]
     Indication: SCHIZOPHRENIA
     Dosage: 100 MG PO
     Route: 048
     Dates: start: 20050201
  2. LORAZEPAM [Concomitant]

REACTIONS (1)
  - RASH GENERALISED [None]
